FAERS Safety Report 8171825-4 (Version None)
Quarter: 2012Q1

REPORT INFORMATION
  Report Type: 
  Country: None (occurrence: None)
  Receive Date: 20120113
  Receipt Date: 20111128
  Transmission Date: 20120608
  Serious: No
  Sender: FDA-Public Use
  Company Number: PHEH2011US009742

PATIENT
  Sex: Male

DRUGS (1)
  1. ILARIS [Suspect]
     Indication: CRYOPYRIN ASSOCIATED PERIODIC SYNDROME
     Dosage: 150 MG, Q8WEEK, SUBCUTANEOUS
     Route: 058
     Dates: start: 20110801

REACTIONS (6)
  - GOUT [None]
  - ERYTHEMA [None]
  - FUNGAL SKIN INFECTION [None]
  - SWELLING [None]
  - PRURITUS [None]
  - PAIN [None]
